FAERS Safety Report 24809552 (Version 5)
Quarter: 2025Q1

REPORT INFORMATION
  Report Type: Spontaneous
  Country: US (occurrence: US)
  Receive Date: 20250106
  Receipt Date: 20250205
  Transmission Date: 20250409
  Serious: Yes (Other)
  Sender: ABBVIE
  Company Number: US-ABBVIE-6071941

PATIENT
  Sex: Female

DRUGS (2)
  1. CREON [Suspect]
     Active Substance: PANCRELIPASE AMYLASE\PANCRELIPASE LIPASE\PANCRELIPASE PROTEASE
     Indication: Pancreatic failure
     Route: 048
  2. CREON [Suspect]
     Active Substance: PANCRELIPASE AMYLASE\PANCRELIPASE LIPASE\PANCRELIPASE PROTEASE
     Indication: Pancreatic failure
     Route: 048

REACTIONS (16)
  - Spinal disorder [Unknown]
  - Craniocerebral injury [Unknown]
  - Nervous system disorder [Unknown]
  - Unevaluable event [Unknown]
  - Product container issue [Not Recovered/Not Resolved]
  - Bradykinesia [Unknown]
  - Upper respiratory tract infection [Not Recovered/Not Resolved]
  - Brain fog [Unknown]
  - Malaise [Unknown]
  - Asthenia [Unknown]
  - Feeding disorder [Unknown]
  - Norovirus infection [Unknown]
  - Urinary tract infection [Not Recovered/Not Resolved]
  - Surgical failure [Unknown]
  - Spinal deformity [Unknown]
  - Product quality issue [Not Recovered/Not Resolved]

NARRATIVE: CASE EVENT DATE: 20250102
